FAERS Safety Report 12299739 (Version 4)
Quarter: 2016Q3

REPORT INFORMATION
  Report Type: Report from Study
  Country: DE (occurrence: DE)
  Receive Date: 20160425
  Receipt Date: 20160714
  Transmission Date: 20161109
  Serious: Yes (Death, Hospitalization, Other)
  Sender: FDA-Public Use
  Company Number: PHHY2014DE085916

PATIENT
  Sex: Female
  Weight: 52 kg

DRUGS (3)
  1. EXEMESTANE. [Concomitant]
     Active Substance: EXEMESTANE
     Indication: BREAST CANCER METASTATIC
     Dosage: 25 MG, QD
     Route: 048
     Dates: start: 20140311, end: 20140710
  2. AFINITOR [Suspect]
     Active Substance: EVEROLIMUS
     Indication: BREAST CANCER METASTATIC
     Dosage: 10 MG, QD
     Route: 048
     Dates: start: 20140311, end: 20140609
  3. AFINITOR [Suspect]
     Active Substance: EVEROLIMUS
     Dosage: 5 MG, QD
     Route: 048
     Dates: start: 20140610, end: 20140710

REACTIONS (8)
  - Malignant neoplasm progression [Fatal]
  - Metastases to bone [Unknown]
  - Metastases to central nervous system [Unknown]
  - Alanine aminotransferase increased [Recovered/Resolved]
  - Malignant pleural effusion [Recovered/Resolved with Sequelae]
  - Metastases to pleura [Unknown]
  - Hypertension [Recovered/Resolved]
  - Gamma-glutamyltransferase increased [Recovered/Resolved]

NARRATIVE: CASE EVENT DATE: 20140626
